FAERS Safety Report 20949252 (Version 2)
Quarter: 2022Q4

REPORT INFORMATION
  Report Type: Spontaneous
  Country: US (occurrence: US)
  Receive Date: 20220613
  Receipt Date: 20221003
  Transmission Date: 20230113
  Serious: Yes (Other)
  Sender: FDA-Public Use
  Company Number: US-JNJFOC-20220610324

PATIENT
  Age: 57 Year
  Sex: Female

DRUGS (3)
  1. ELMIRON [Suspect]
     Active Substance: PENTOSAN POLYSULFATE SODIUM
     Indication: Cystitis interstitial
     Route: 048
     Dates: start: 1996
  2. ELMIRON [Suspect]
     Active Substance: PENTOSAN POLYSULFATE SODIUM
     Route: 048
     Dates: start: 19980101, end: 20200801
  3. ELAVIL [Concomitant]
     Active Substance: AMITRIPTYLINE HYDROCHLORIDE
     Indication: Cystitis interstitial
     Dates: start: 19980101

REACTIONS (6)
  - Dry age-related macular degeneration [Not Recovered/Not Resolved]
  - Neovascular age-related macular degeneration [Not Recovered/Not Resolved]
  - Charles Bonnet syndrome [Unknown]
  - Retinal scar [Unknown]
  - Subretinal fibrosis [Unknown]
  - Vitreous detachment [Unknown]

NARRATIVE: CASE EVENT DATE: 20040101
